FAERS Safety Report 7043887-9 (Version None)
Quarter: 2010Q4

REPORT INFORMATION
  Report Type: 
  Country: None (occurrence: None)
  Receive Date: 20101013
  Receipt Date: 20101005
  Transmission Date: 20110411
  Serious: Yes (Other)
  Sender: FDA-Public Use
  Company Number: FR-PFIZER INC-2010125988

PATIENT
  Age: 52 Year
  Sex: Male

DRUGS (5)
  1. CHAMPIX [Suspect]
     Indication: SMOKING CESSATION THERAPY
     Dosage: UNK
  2. AMAREL [Concomitant]
     Dosage: UNK
  3. EUCREAS [Concomitant]
     Dosage: UNK
  4. TAHOR [Concomitant]
     Dosage: UNK
  5. FENOFIBRATE [Concomitant]
     Dosage: UNK

REACTIONS (1)
  - HYPERGLYCAEMIA [None]
